FAERS Safety Report 14309449 (Version 2)
Quarter: 2018Q1

REPORT INFORMATION
  Report Type: Spontaneous
  Country: SE (occurrence: SE)
  Receive Date: 20171220
  Receipt Date: 20180205
  Transmission Date: 20180509
  Serious: Yes (Hospitalization, Other)
  Sender: FDA-Public Use
  Company Number: SE-TEVA-2017-SE-832424

PATIENT
  Age: 86 Year
  Sex: Female

DRUGS (16)
  1. OXASCAND [Concomitant]
     Active Substance: OXAZEPAM
  2. XERODENT [Concomitant]
  3. MOVICOL [Concomitant]
     Active Substance: POLYETHYLENE GLYCOL 3350\POTASSIUM CHLORIDE\SODIUM BICARBONATE\SODIUM CHLORIDE
  4. KALEORID [Concomitant]
     Active Substance: POTASSIUM CHLORIDE
  5. LEVAXIN [Concomitant]
     Active Substance: LEVOTHYROXINE SODIUM
  6. EMGESAN [Concomitant]
  7. EUSAPRIM FORTE [Concomitant]
     Active Substance: SULFAMETHOXAZOLE\TRIMETHOPRIM
  8. OMEPRAZOL PENSA [Concomitant]
     Active Substance: OMEPRAZOLE MAGNESIUM
  9. ALVEDON [Concomitant]
     Active Substance: ACETAMINOPHEN
  10. ESOMEPRAZOLE [Suspect]
     Active Substance: ESOMEPRAZOLE
     Indication: GASTRIC ULCER
     Route: 048
     Dates: start: 20171005, end: 20171115
  11. AMLODIPINE [Concomitant]
     Active Substance: AMLODIPINE BESYLATE
  12. OFTAGEL [Concomitant]
     Active Substance: CARBOMER
  13. LASIX [Concomitant]
     Active Substance: FUROSEMIDE
  14. SPIRIVA RESPIMAT [Concomitant]
     Active Substance: TIOTROPIUM BROMIDE
  15. IMOVANE [Concomitant]
     Active Substance: ZOPICLONE
  16. KALCIPOS-D [Concomitant]
     Active Substance: CALCIUM CARBONATE\CHOLECALCIFEROL

REACTIONS (2)
  - Magnesium metabolism disorder [Recovered/Resolved]
  - Calcium metabolism disorder [Recovered/Resolved]

NARRATIVE: CASE EVENT DATE: 20171107
